FAERS Safety Report 16174744 (Version 3)
Quarter: 2019Q2

REPORT INFORMATION
  Report Type: Spontaneous
  Country: US (occurrence: US)
  Receive Date: 20190409
  Receipt Date: 20190612
  Transmission Date: 20190711
  Serious: Yes (Hospitalization, Other)
  Sender: FDA-Public Use
  Company Number: US-PFIZER INC-2019144585

PATIENT
  Age: 60 Year
  Sex: Female
  Weight: 108 kg

DRUGS (3)
  1. LYRICA [Suspect]
     Active Substance: PREGABALIN
     Indication: NEUROPATHY PERIPHERAL
  2. LYRICA [Suspect]
     Active Substance: PREGABALIN
     Indication: FIBROMYALGIA
     Dosage: 100 MG, 3X/DAY
     Route: 048
  3. LYRICA [Suspect]
     Active Substance: PREGABALIN
     Indication: DIABETIC NEUROPATHY

REACTIONS (8)
  - Cerebrovascular accident [Recovered/Resolved]
  - Urinary tract infection [Unknown]
  - Confusional state [Unknown]
  - Vomiting [Unknown]
  - Blood urine [Unknown]
  - Malaise [Not Recovered/Not Resolved]
  - Fear [Unknown]
  - Pain in extremity [Unknown]

NARRATIVE: CASE EVENT DATE: 201805
